FAERS Safety Report 9620938 (Version 1)
Quarter: 2013Q4

REPORT INFORMATION
  Report Type: Report from Study
  Country: BR (occurrence: BR)
  Receive Date: 20131015
  Receipt Date: 20131015
  Transmission Date: 20140711
  Serious: Yes (Death)
  Sender: FDA-Public Use
  Company Number: PHHY2013BR115030

PATIENT
  Sex: Male
  Weight: 50 kg

DRUGS (7)
  1. EXELON PATCH [Suspect]
     Indication: DEPENDENT PERSONALITY DISORDER
     Dosage: 4.6 MG, DAILY
     Route: 062
  2. EXELON PATCH [Suspect]
     Indication: OFF LABEL USE
  3. QUEROPAX [Concomitant]
  4. RIVOTRIL [Concomitant]
  5. SOMALGIN [Concomitant]
     Indication: PERIPHERAL VASCULAR DISORDER
  6. MEMANTINE [Concomitant]
  7. BUPROPION HCL [Concomitant]
     Indication: SMOKING CESSATION THERAPY

REACTIONS (1)
  - Dementia Alzheimer^s type [Fatal]
